FAERS Safety Report 21128016 (Version 1)
Quarter: 2022Q3

REPORT INFORMATION
  Report Type: Spontaneous
  Country: US (occurrence: US)
  Receive Date: 20220725
  Receipt Date: 20220725
  Transmission Date: 20221027
  Serious: No
  Sender: FDA-Public Use
  Company Number: US-ABBVIE-22K-163-4433094-00

PATIENT
  Sex: Female

DRUGS (1)
  1. SYNTHROID [Suspect]
     Active Substance: LEVOTHYROXINE SODIUM
     Indication: Product used for unknown indication
     Route: 048
     Dates: start: 1995

REACTIONS (8)
  - Oropharyngeal pain [Unknown]
  - Dysphagia [Unknown]
  - Hypersensitivity [Unknown]
  - Thyroid disorder [Unknown]
  - Bone density decreased [Unknown]
  - Fall [Unknown]
  - Hip fracture [Unknown]
  - Osteoporosis [Unknown]
